FAERS Safety Report 8429214-0 (Version None)
Quarter: 2012Q2

REPORT INFORMATION
  Report Type: 
  Country: None (occurrence: None)
  Receive Date: 20120612
  Receipt Date: 20120606
  Transmission Date: 20120825
  Serious: Yes (Other)
  Sender: FDA-Public Use
  Company Number: PHHY2012DE015092

PATIENT
  Sex: Male
  Weight: 120 kg

DRUGS (1)
  1. SANDOSTATIN LAR [Suspect]
     Indication: ACROMEGALY
     Dosage: 30 MG, QMO
     Route: 030
     Dates: start: 20111230

REACTIONS (6)
  - ASTHENIA [None]
  - ALOPECIA [None]
  - ILEUS [None]
  - CONSTIPATION [None]
  - STEATORRHOEA [None]
  - WEIGHT DECREASED [None]
